FAERS Safety Report 5188469-9 (Version None)
Quarter: 2006Q4

REPORT INFORMATION
  Report Type: 
  Country: None (occurrence: None)
  Receive Date: 20061221
  Receipt Date: 20060526
  Transmission Date: 20070319
  Serious: No
  Sender: FDA-Public Use
  Company Number: US-AMGEN-KDL181064

PATIENT
  Sex: Male

DRUGS (1)
  1. ENBREL [Suspect]
     Indication: ANKYLOSING SPONDYLITIS
     Route: 058
     Dates: start: 20060526

REACTIONS (8)
  - ASTHENIA [None]
  - DISTURBANCE IN ATTENTION [None]
  - HEADACHE [None]
  - MUSCLE SPASMS [None]
  - NERVOUSNESS [None]
  - PHARYNGOLARYNGEAL PAIN [None]
  - SOMNOLENCE [None]
  - TENDERNESS [None]
